FAERS Safety Report 10637445 (Version 1)
Quarter: 2014Q4

REPORT INFORMATION
  Report Type: Spontaneous
  Country: None (occurrence: None)
  Receive Date: 20141205
  Receipt Date: 20141205
  Transmission Date: 20150529
  Serious: Yes (Death, Hospitalization, Other)
  Sender: FDA-Public Use
  Company Number: None

PATIENT
  Age: 52 Year
  Sex: Female
  Weight: 100 kg

DRUGS (1)
  1. CAPECITABINE. [Suspect]
     Active Substance: CAPECITABINE
     Indication: LYMPHADENOPATHY
     Dosage: 4 TABLETS, TWICE DAILY, TAKEN BY MOUTH
     Route: 048
     Dates: start: 20140822, end: 20140903

REACTIONS (10)
  - Platelet count decreased [None]
  - Neutropenia [None]
  - Nausea [None]
  - Abdominal pain upper [None]
  - Cardiac failure [None]
  - Diarrhoea [None]
  - Cardiotoxicity [None]
  - Cardiogenic shock [None]
  - Cardiac arrest [None]
  - Cardiomyopathy [None]

NARRATIVE: CASE EVENT DATE: 20140828
